FAERS Safety Report 5504021-7 (Version None)
Quarter: 2007Q4

REPORT INFORMATION
  Report Type: 
  Country: None (occurrence: None)
  Receive Date: 20071101
  Receipt Date: 20070720
  Transmission Date: 20080405
  Serious: Yes (Hospitalization, Other)
  Sender: FDA-Public Use
  Company Number: GB-MERCK-0710USA07075

PATIENT
  Age: 58 Year
  Sex: Female

DRUGS (5)
  1. METFORMIN [Concomitant]
     Indication: DIABETES MELLITUS
     Route: 048
  2. PRINIVIL [Suspect]
     Indication: BLOOD PRESSURE
     Route: 048
     Dates: start: 20070703, end: 20070701
  3. FUROSEMIDE [Concomitant]
     Indication: FLUID RETENTION
     Route: 048
  4. PREDNISOLONE [Concomitant]
     Indication: POLYMYALGIA RHEUMATICA
     Route: 048
  5. LEVOTHYROXINE SODIUM [Concomitant]
     Indication: HYPOTHYROIDISM
     Route: 048

REACTIONS (2)
  - ELECTROCARDIOGRAM CHANGE [None]
  - HYPERKALAEMIA [None]
